FAERS Safety Report 6203131-9 (Version None)
Quarter: 2009Q2

REPORT INFORMATION
  Report Type: 
  Country: None (occurrence: None)
  Receive Date: 20090522
  Receipt Date: 20090522
  Transmission Date: 20091009
  Serious: No
  Sender: FDA-Public Use
  Company Number: None

PATIENT
  Sex: Male
  Weight: 48.5349 kg

DRUGS (2)
  1. AMIFOSTINE [Suspect]
     Indication: DRY MOUTH
     Dosage: 500 MG M-F SQ 5 DOSES
     Route: 058
     Dates: start: 20090512
  2. AMIFOSTINE [Suspect]
     Indication: HYPERTENSION
     Dosage: 500 MG M-F SQ 5 DOSES
     Route: 058
     Dates: start: 20090512

REACTIONS (3)
  - BODY TEMPERATURE DECREASED [None]
  - PRURITUS [None]
  - RASH MACULAR [None]
